FAERS Safety Report 5313493-2 (Version None)
Quarter: 2007Q2

REPORT INFORMATION
  Report Type: 
  Country: None (occurrence: None)
  Receive Date: 20070424
  Receipt Date: 20070412
  Transmission Date: 20071010
  Serious: Yes (Other)
  Sender: FDA-Public Use
  Company Number: 16324

PATIENT
  Sex: Female

DRUGS (3)
  1. CISPLATIN [Suspect]
     Indication: GASTRIC CANCER
  2. EPIRUBICIN [Suspect]
     Indication: GASTRIC CANCER
  3. XELODA [Suspect]
     Dosage: 950 MG DAILY PO
     Route: 048

REACTIONS (1)
  - HYPERSENSITIVITY [None]
